FAERS Safety Report 7466252-9 (Version None)
Quarter: 2011Q2

REPORT INFORMATION
  Report Type: 
  Country: None (occurrence: None)
  Receive Date: 20110509
  Receipt Date: 20100513
  Transmission Date: 20111010
  Serious: No
  Sender: FDA-Public Use
  Company Number: US-ALEXION-A201000787

PATIENT
  Sex: Male

DRUGS (5)
  1. FOLIC ACID [Concomitant]
     Indication: HYPOVITAMINOSIS
     Dosage: UNK
     Route: 048
  2. CYCLOSPORINE [Concomitant]
     Indication: PROPHYLAXIS AGAINST TRANSPLANT REJECTION
     Dosage: UNK
     Route: 048
  3. IRON [Concomitant]
     Indication: HYPOVITAMINOSIS
     Dosage: UNK
     Route: 048
  4. PREDNISONE [Concomitant]
     Dosage: 5 MG, QOD
     Route: 048
  5. SOLIRIS [Suspect]
     Indication: PAROXYSMAL NOCTURNAL HAEMOGLOBINURIA
     Dosage: UNK

REACTIONS (3)
  - EXOSTOSIS [None]
  - PAIN IN EXTREMITY [None]
  - BLOOD COUNT ABNORMAL [None]
